FAERS Safety Report 13835823 (Version 2)
Quarter: 2017Q3

REPORT INFORMATION
  Report Type: Report from Study
  Country: CO (occurrence: CO)
  Receive Date: 20170804
  Receipt Date: 20170901
  Transmission Date: 20171127
  Serious: Yes (Hospitalization, Other)
  Sender: FDA-Public Use
  Company Number: CO-AMGEN-COLSL2017116439

PATIENT
  Age: 67 Year
  Sex: Male

DRUGS (1)
  1. KYPROLIS [Suspect]
     Active Substance: CARFILZOMIB
     Indication: PLASMA CELL MYELOMA
     Dosage: UNK
     Route: 042
     Dates: start: 20170215

REACTIONS (3)
  - Dialysis [Unknown]
  - Arteriovenous fistula site complication [Recovered/Resolved]
  - Pulmonary oedema [Recovered/Resolved]

NARRATIVE: CASE EVENT DATE: 2017
